FAERS Safety Report 15612917 (Version 1)
Quarter: 2018Q4

REPORT INFORMATION
  Report Type: Spontaneous
  Country: GB (occurrence: GB)
  Receive Date: 20181113
  Receipt Date: 20181113
  Transmission Date: 20190205
  Serious: Yes (Other)
  Sender: FDA-Public Use
  Company Number: GB-ELI_LILLY_AND_COMPANY-13402599

PATIENT
  Age: 62 Year
  Sex: Female
  Weight: 68 kg

DRUGS (2)
  1. IRINOTECAN [Concomitant]
     Active Substance: IRINOTECAN
     Indication: COLORECTAL CANCER METASTATIC
     Dosage: 500 MG, UNK
     Route: 041
     Dates: start: 20050207, end: 20060424
  2. CETUXIMAB. [Suspect]
     Active Substance: CETUXIMAB
     Indication: COLORECTAL CANCER METASTATIC
     Dosage: 64.2857 MG.
     Route: 041
     Dates: start: 20050207, end: 20060512

REACTIONS (4)
  - Muscle spasms [Not Recovered/Not Resolved]
  - Muscle spasms [Unknown]
  - Nephropathy [Not Recovered/Not Resolved]
  - Blood magnesium decreased [Not Recovered/Not Resolved]

NARRATIVE: CASE EVENT DATE: 20060227
